FAERS Safety Report 25897166 (Version 3)
Quarter: 2025Q4

REPORT INFORMATION
  Report Type: Spontaneous
  Country: US (occurrence: US)
  Receive Date: 20251008
  Receipt Date: 20251117
  Transmission Date: 20260117
  Serious: Yes (Other)
  Sender: SANOFI AVENTIS
  Company Number: US-SANOFI-02679478

PATIENT
  Age: 36 Year
  Sex: Male
  Weight: 110.91 kg

DRUGS (4)
  1. DUPIXENT [Suspect]
     Active Substance: DUPILUMAB
     Indication: Nasal polyps
     Dosage: 300 MG, QOW
     Route: 058
     Dates: start: 20250924, end: 2025
  2. DUPIXENT [Suspect]
     Active Substance: DUPILUMAB
     Indication: Sinusitis
  3. AZELASTINE [Suspect]
     Active Substance: AZELASTINE
     Dosage: UNK
  4. SINGULAIR [Concomitant]
     Active Substance: MONTELUKAST SODIUM

REACTIONS (10)
  - Immune thrombocytopenia [Recovered/Resolved]
  - Glossodynia [Not Recovered/Not Resolved]
  - Tenderness [Recovered/Resolved]
  - Contusion [Unknown]
  - Gingival discolouration [Unknown]
  - Nasal congestion [Not Recovered/Not Resolved]
  - Epistaxis [Unknown]
  - Pain of skin [Recovered/Resolved]
  - Oral herpes [Recovered/Resolved]
  - Product use in unapproved indication [Unknown]

NARRATIVE: CASE EVENT DATE: 20250101
